FAERS Safety Report 8418095-7 (Version None)
Quarter: 2012Q2

REPORT INFORMATION
  Report Type: 
  Country: None (occurrence: None)
  Receive Date: 20120607
  Receipt Date: 20120531
  Transmission Date: 20120825
  Serious: Yes (Other)
  Sender: FDA-Public Use
  Company Number: CN-JNJFOC-20120501302

PATIENT
  Sex: Female
  Weight: 68 kg

DRUGS (2)
  1. MICONAZOLE [Suspect]
     Indication: TINEA PEDIS
     Route: 061
     Dates: start: 20111009, end: 20111010
  2. MICONAZOLE [Suspect]
     Route: 061

REACTIONS (1)
  - APPLICATION SITE REACTION [None]
